FAERS Safety Report 8858548 (Version 1)
Quarter: 2012Q4

REPORT INFORMATION
  Report Type: 
  Country: US (occurrence: US)
  Receive Date: 20121024
  Receipt Date: 20121024
  Transmission Date: 20130627
  Serious: Yes (Other)
  Sender: FDA-Public Use
  Company Number: US-PFIZER INC-2012261094

PATIENT
  Sex: Female

DRUGS (1)
  1. LYRICA [Suspect]
     Dosage: UNK
     Dates: start: 201210, end: 20121018

REACTIONS (4)
  - Impaired work ability [Unknown]
  - Impaired driving ability [Unknown]
  - Feeling abnormal [Unknown]
  - Euphoric mood [Unknown]
